FAERS Safety Report 8949077 (Version 1)
Quarter: 2012Q4

REPORT INFORMATION
  Report Type: 
  Country: US (occurrence: US)
  Receive Date: 20121206
  Receipt Date: 20121206
  Transmission Date: 20130627
  Serious: No
  Sender: FDA-Public Use
  Company Number: US-PFIZER INC-2012306056

PATIENT
  Age: 48 Year
  Sex: Female
  Weight: 95.24 kg

DRUGS (1)
  1. LYRICA [Suspect]
     Indication: SHOULDER PAIN
     Dosage: 75 mg, 2x/day
     Route: 048
     Dates: start: 20121203, end: 20121204

REACTIONS (6)
  - Vision blurred [Unknown]
  - Somnolence [Unknown]
  - Nausea [Unknown]
  - Malaise [Unknown]
  - Migraine [Unknown]
  - Pyrexia [Unknown]
